FAERS Safety Report 6552013-1 (Version None)
Quarter: 2010Q1

REPORT INFORMATION
  Report Type: 
  Country: None (occurrence: None)
  Receive Date: 20100126
  Receipt Date: 20100111
  Transmission Date: 20100710
  Serious: Yes (Hospitalization, Other)
  Sender: FDA-Public Use
  Company Number: GB-PFIZER INC-2006150476

PATIENT
  Age: 72 Year
  Sex: Female

DRUGS (7)
  1. SPIRONOLACTONE [Suspect]
  2. LISINOPRIL [Suspect]
  3. FELODIPINE [Concomitant]
     Route: 048
  4. BENDROFLUMETHIAZIDE [Concomitant]
     Route: 048
  5. DOXAZOSIN MESYLATE [Concomitant]
  6. MOXONIDINE [Concomitant]
  7. ATENOLOL [Concomitant]

REACTIONS (2)
  - BLOOD CREATININE INCREASED [None]
  - HYPERKALAEMIA [None]
